APPROVED DRUG PRODUCT: NORTRIPTYLINE HYDROCHLORIDE
Active Ingredient: NORTRIPTYLINE HYDROCHLORIDE
Strength: EQ 75MG BASE
Dosage Form/Route: CAPSULE;ORAL
Application: A074054 | Product #004
Applicant: ANI PHARMACEUTICALS INC
Approved: Dec 31, 1992 | RLD: No | RS: No | Type: DISCN